FAERS Safety Report 12329980 (Version 7)
Quarter: 2016Q4

REPORT INFORMATION
  Report Type: Report from Study
  Country: BR (occurrence: BR)
  Receive Date: 20160504
  Receipt Date: 20161227
  Transmission Date: 20170207
  Serious: Yes (Hospitalization, Other)
  Sender: FDA-Public Use
  Company Number: PHHY2015BR001390

PATIENT
  Sex: Female
  Weight: 57 kg

DRUGS (5)
  1. LOSARTAN. [Concomitant]
     Active Substance: LOSARTAN
     Indication: HYPERTENSION
     Dosage: 1 DF, QD
     Route: 048
  2. HYDROCHLOROTHIAZIDE. [Concomitant]
     Active Substance: HYDROCHLOROTHIAZIDE
     Indication: HYPERTENSION
     Dosage: 1 DF, QD
     Route: 048
  3. SANDOSTATIN LAR DEPOT [Suspect]
     Active Substance: OCTREOTIDE ACETATE
     Indication: ACROMEGALY
     Dosage: 30 MG, EVERY 28 DAYS
     Route: 030
     Dates: start: 201411
  4. GINKGO BILOBA [Suspect]
     Active Substance: GINKGO
     Indication: PRODUCT USED FOR UNKNOWN INDICATION
     Route: 065
  5. PROPRANOLOL [Concomitant]
     Active Substance: PROPRANOLOL\PROPRANOLOL HYDROCHLORIDE
     Indication: HYPERTENSION
     Route: 065

REACTIONS (21)
  - Blood pressure increased [Unknown]
  - Feeling abnormal [Unknown]
  - Stress [Unknown]
  - Bone cancer [Not Recovered/Not Resolved]
  - Weight decreased [Recovering/Resolving]
  - Metastases to bone [Recovering/Resolving]
  - Procedural complication [Unknown]
  - Headache [Unknown]
  - Sluggishness [Unknown]
  - General physical health deterioration [Unknown]
  - Malaise [Recovering/Resolving]
  - Pain in extremity [Unknown]
  - Hepatic cancer [Not Recovered/Not Resolved]
  - Memory impairment [Recovering/Resolving]
  - Muscular weakness [Unknown]
  - Metastases to liver [Recovering/Resolving]
  - Abdominal pain [Unknown]
  - Pain [Not Recovered/Not Resolved]
  - Spinal pain [Unknown]
  - Back pain [Not Recovered/Not Resolved]
  - Vomiting [Unknown]

NARRATIVE: CASE EVENT DATE: 2014
